FAERS Safety Report 11982817 (Version 1)
Quarter: 2016Q1

REPORT INFORMATION
  Report Type: Spontaneous
  Country: US (occurrence: None)
  Receive Date: 20160129
  Receipt Date: 20160129
  Transmission Date: 20160526
  Serious: Yes (Disabling)
  Sender: FDA-Public Use
  Company Number: None

PATIENT
  Age: 42 Year
  Sex: Female
  Weight: 214 kg

DRUGS (5)
  1. ALBUTEROL INHALER [Concomitant]
     Active Substance: ALBUTEROL
  2. SINGULAIR [Concomitant]
     Active Substance: MONTELUKAST SODIUM
  3. DICLOFENAC SODIUM. [Concomitant]
     Active Substance: DICLOFENAC SODIUM
  4. LEVOFLOXACIN 500 MG [Suspect]
     Active Substance: LEVOFLOXACIN
     Indication: BRONCHITIS
     Dosage: 1 PILL EVERY 24 HOURS, ONCE DAILY
     Dates: start: 20151009, end: 20151018
  5. SYMBICORT [Concomitant]
     Active Substance: BUDESONIDE\FORMOTEROL FUMARATE DIHYDRATE

REACTIONS (22)
  - Neuralgia [None]
  - Tinnitus [None]
  - Menstrual disorder [None]
  - Breast mass [None]
  - Tendon pain [None]
  - Irritable bowel syndrome [None]
  - Vitreous floaters [None]
  - Breast pain [None]
  - Pain [None]
  - Dysphemia [None]
  - Fatigue [None]
  - Paraesthesia [None]
  - Amnesia [None]
  - Muscle spasms [None]
  - Hallucination [None]
  - Myalgia [None]
  - Muscular weakness [None]
  - Back pain [None]
  - Depressed level of consciousness [None]
  - Abnormal dreams [None]
  - Visual impairment [None]
  - Aphasia [None]

NARRATIVE: CASE EVENT DATE: 20151012
